FAERS Safety Report 25300808 (Version 1)
Quarter: 2025Q2

REPORT INFORMATION
  Report Type: Spontaneous
  Country: US (occurrence: None)
  Receive Date: 20250510
  Receipt Date: 20250510
  Transmission Date: 20250716
  Serious: Yes (Hospitalization)
  Sender: FDA-CTU
  Company Number: None

PATIENT
  Age: 33 Month
  Sex: Female
  Weight: 11.8 kg

DRUGS (5)
  1. CALASPARGASE PEGOL [Suspect]
     Active Substance: CALASPARGASE PEGOL
  2. CYCLOPHOSPHAMIDE [Suspect]
     Active Substance: CYCLOPHOSPHAMIDE
  3. CYTARABINE [Suspect]
     Active Substance: CYTARABINE
  4. THIOGUANINE ANHYDROUS [Suspect]
     Active Substance: THIOGUANINE ANHYDROUS
  5. VINCRISTINE SULFATE [Suspect]
     Active Substance: VINCRISTINE SULFATE

REACTIONS (4)
  - Venoocclusive liver disease [None]
  - Anaemia [None]
  - Thrombocytopenia [None]
  - Venoocclusive disease [None]

NARRATIVE: CASE EVENT DATE: 20250508
